FAERS Safety Report 18707105 (Version 7)
Quarter: 2021Q2

REPORT INFORMATION
  Report Type: Report from Study
  Country: US (occurrence: US)
  Receive Date: 20210106
  Receipt Date: 20210413
  Transmission Date: 20210717
  Serious: Yes (Other)
  Sender: FDA-Public Use
  Company Number: US-TEVA-2021-US-1866430

PATIENT
  Age: 35 Year
  Sex: Female
  Weight: 70.76 kg

DRUGS (2)
  1. CLARAVIS [Suspect]
     Active Substance: ISOTRETINOIN
     Dosage: 60 MILLIGRAM DAILY; BID
     Route: 065
     Dates: start: 20201130, end: 20201223
  2. CLARAVIS [Suspect]
     Active Substance: ISOTRETINOIN
     Dosage: 60 MILLIGRAM DAILY; BID
     Route: 065
     Dates: start: 20201202, end: 20210101

REACTIONS (2)
  - Abortion spontaneous [Unknown]
  - Unintended pregnancy [Unknown]

NARRATIVE: CASE EVENT DATE: 20201125
